FAERS Safety Report 16844802 (Version 1)
Quarter: 2019Q3

REPORT INFORMATION
  Report Type: Report from Study
  Country: GB (occurrence: GB)
  Receive Date: 20190924
  Receipt Date: 20190924
  Transmission Date: 20191005
  Serious: Yes (Other)
  Sender: FDA-Public Use
  Company Number: PHHY2019GB211003

PATIENT
  Sex: Female

DRUGS (1)
  1. COSENTYX [Suspect]
     Active Substance: SECUKINUMAB
     Indication: PSORIASIS
     Dosage: 300 MG, QMO (PREFILLED)
     Route: 058
     Dates: start: 20190204

REACTIONS (4)
  - Psoriasis [Unknown]
  - Skin laceration [Unknown]
  - Cellulitis [Unknown]
  - Swelling [Unknown]
